FAERS Safety Report 23488793 (Version 1)
Quarter: 2024Q1

REPORT INFORMATION
  Report Type: Spontaneous
  Country: RO (occurrence: RO)
  Receive Date: 20240206
  Receipt Date: 20240206
  Transmission Date: 20240410
  Serious: Yes (Other)
  Sender: FDA-Public Use
  Company Number: RO-VERTEX PHARMACEUTICALS-2024-001705

PATIENT
  Age: 10 Year
  Sex: Female

DRUGS (1)
  1. ELEXACAFTOR\IVACAFTOR\TEZACAFTOR [Suspect]
     Active Substance: ELEXACAFTOR\IVACAFTOR\TEZACAFTOR
     Indication: Cystic fibrosis
     Dosage: ALTERNATE REGIMEN: DAY1: 2 TAB (37.5 MG IVA, 25 MG TEZ, 50 MG ELEX) IN AM AND ON DAY2: 1 TAB AM
     Route: 048
     Dates: start: 202307, end: 202312

REACTIONS (1)
  - Child-Pugh-Turcotte score increased [Not Recovered/Not Resolved]

NARRATIVE: CASE EVENT DATE: 20231201
